FAERS Safety Report 13027575 (Version 2)
Quarter: 2017Q1

REPORT INFORMATION
  Report Type: Spontaneous
  Country: ES (occurrence: ES)
  Receive Date: 20161214
  Receipt Date: 20170121
  Transmission Date: 20170428
  Serious: Yes (Death, Hospitalization, Other)
  Sender: FDA-Public Use
  Company Number: ES-ALEXION PHARMACEUTICALS INC.-A201609689

PATIENT
  Sex: Male

DRUGS (3)
  1. SOLIRIS [Suspect]
     Active Substance: ECULIZUMAB
     Dosage: 900 MG, UNK
     Route: 042
     Dates: start: 20161111
  2. SOLIRIS [Suspect]
     Active Substance: ECULIZUMAB
     Indication: HAEMOLYTIC URAEMIC SYNDROME
     Dosage: 5 DOSES
     Route: 042
     Dates: start: 20160118
  3. SOLIRIS [Suspect]
     Active Substance: ECULIZUMAB
     Dosage: 1 DOSE
     Route: 042

REACTIONS (2)
  - Inappropriate schedule of drug administration [Unknown]
  - Tuberculosis [Fatal]

NARRATIVE: CASE EVENT DATE: 201611
